FAERS Safety Report 7396680-1 (Version None)
Quarter: 2011Q1

REPORT INFORMATION
  Report Type: 
  Country: None (occurrence: None)
  Receive Date: 20110331
  Receipt Date: 20110331
  Transmission Date: 20110831
  Serious: Yes (Other)
  Sender: FDA-Public Use
  Company Number: None

PATIENT
  Age: 71 Year
  Sex: Female
  Weight: 51 kg

DRUGS (1)
  1. VANCOMYCIN [Suspect]
     Indication: INFECTION
     Dosage: 1 GRAM PULSE DOSED IV
     Route: 042
     Dates: start: 20101121, end: 20101121

REACTIONS (3)
  - LIP SWELLING [None]
  - INFUSION RELATED REACTION [None]
  - DYSPNOEA [None]
